FAERS Safety Report 7306924-X (Version None)
Quarter: 2011Q1

REPORT INFORMATION
  Report Type: 
  Country: None (occurrence: None)
  Receive Date: 20110223
  Receipt Date: 20110211
  Transmission Date: 20110831
  Serious: No
  Sender: FDA-Public Use
  Company Number: US-BIOGENIDEC-2010BI040686

PATIENT
  Age: 41 Year
  Sex: Female

DRUGS (4)
  1. TYSABRI [Suspect]
     Indication: MULTIPLE SCLEROSIS
     Route: 042
     Dates: start: 20101013
  2. TYSABRI [Suspect]
     Route: 042
     Dates: start: 20080702, end: 20091209
  3. TYSABRI [Suspect]
     Route: 042
     Dates: start: 20050222
  4. TYSABRI [Suspect]
     Route: 042
     Dates: start: 20060818, end: 20071023

REACTIONS (1)
  - JC VIRUS TEST POSITIVE [None]
